FAERS Safety Report 25067665 (Version 4)
Quarter: 2025Q3

REPORT INFORMATION
  Report Type: Report from Study
  Country: US (occurrence: US)
  Receive Date: 20250312
  Receipt Date: 20250728
  Transmission Date: 20251021
  Serious: Yes (Other)
  Sender: NOVARTIS
  Company Number: US-002147023-NVSC2024US074113

PATIENT
  Age: 40 Year
  Sex: Female

DRUGS (3)
  1. KESIMPTA [Suspect]
     Active Substance: OFATUMUMAB
     Indication: Relapsing multiple sclerosis
     Dosage: 20 MG, QMO
     Route: 058
     Dates: start: 20240317
  2. SEMAGLUTIDE [Concomitant]
     Active Substance: SEMAGLUTIDE
     Indication: Product used for unknown indication
     Route: 065
  3. TOPIRAMATE [Concomitant]
     Active Substance: TOPIRAMATE
     Indication: Product used for unknown indication
     Route: 065

REACTIONS (22)
  - Autoimmune thyroiditis [Unknown]
  - Multiple sclerosis [Unknown]
  - Nausea [Unknown]
  - Cerebral disorder [Unknown]
  - Distractibility [Unknown]
  - Disturbance in attention [Unknown]
  - Alopecia [Unknown]
  - Pruritus [Unknown]
  - Nerve compression [Unknown]
  - Periarthritis [Recovered/Resolved with Sequelae]
  - Pain in extremity [Unknown]
  - Cognitive disorder [Unknown]
  - Hypoaesthesia [Recovered/Resolved with Sequelae]
  - Nocturia [Unknown]
  - Eye pain [Unknown]
  - Muscle spasticity [Unknown]
  - Asthenopia [Unknown]
  - Memory impairment [Recovered/Resolved with Sequelae]
  - Dyskinesia [Unknown]
  - Feeling cold [Unknown]
  - Allodynia [Unknown]
  - Skin cancer [Unknown]

NARRATIVE: CASE EVENT DATE: 20240405
